FAERS Safety Report 9915196 (Version 2)
Quarter: 2014Q2

REPORT INFORMATION
  Report Type: Report from Study
  Country: US (occurrence: US)
  Receive Date: 20140220
  Receipt Date: 20140423
  Transmission Date: 20141212
  Serious: Yes (Death, Other)
  Sender: FDA-Public Use
  Company Number: US-ROCHE-1353676

PATIENT
  Sex: Female

DRUGS (9)
  1. BONIVA [Suspect]
     Indication: OSTEOPOROSIS
     Route: 048
  2. BACTRIM [Suspect]
     Indication: PRODUCT USED FOR UNKNOWN INDICATION
     Route: 065
  3. LORTAB [Concomitant]
     Dosage: EVERYB 4-6 HRS, PRN
     Route: 065
  4. XANAX [Concomitant]
     Route: 065
  5. XYZAL [Concomitant]
  6. NEXIUM [Concomitant]
     Route: 065
  7. CRESTOR [Concomitant]
     Route: 065
  8. PROVENTIL [Concomitant]
  9. SYNTHROID [Concomitant]
     Route: 065

REACTIONS (10)
  - Death [Fatal]
  - Pneumonitis [Unknown]
  - Pneumonia [Unknown]
  - Oropharyngeal pain [Unknown]
  - Nausea [Unknown]
  - Vomiting [Unknown]
  - Drug hypersensitivity [Unknown]
  - Gastroenteritis [Unknown]
  - Candida infection [Unknown]
  - Urinary tract infection [Unknown]
